FAERS Safety Report 17652680 (Version 1)
Quarter: 2020Q2

REPORT INFORMATION
  Report Type: Spontaneous
  Country: US (occurrence: US)
  Receive Date: 20200409
  Receipt Date: 20200409
  Transmission Date: 20200713
  Serious: Yes (Other)
  Sender: FDA-Public Use
  Company Number: US-BAYER-2020-055485

PATIENT
  Age: 33 Year
  Sex: Male

DRUGS (1)
  1. ASPIRIN (PAIN AND FEVER) [Suspect]
     Active Substance: ASPIRIN

REACTIONS (1)
  - Haemorrhage intracranial [None]
